FAERS Safety Report 26186590 (Version 1)
Quarter: 2025Q4

REPORT INFORMATION
  Report Type: Spontaneous
  Country: US (occurrence: US)
  Receive Date: 20251222
  Receipt Date: 20251222
  Transmission Date: 20260117
  Serious: No
  Sender: SANOFI AVENTIS
  Company Number: US-SA-2025SA377621

PATIENT
  Sex: Male
  Weight: 123.64 kg

DRUGS (21)
  1. DUPIXENT [Suspect]
     Active Substance: DUPILUMAB
     Indication: Asthma
     Dosage: 300 MG, QOW
     Route: 058
     Dates: start: 20251031
  2. LEVOFLOXACIN [Concomitant]
     Active Substance: LEVOFLOXACIN
  3. CARBIDOPA AND LEVODOPA [Concomitant]
     Active Substance: CARBIDOPA\LEVODOPA
  4. COENZYME Q10 [Concomitant]
     Active Substance: DIETARY SUPPLEMENT\UBIDECARENONE
  5. GLUCOSAMINE SULFATE [Concomitant]
     Active Substance: GLUCOSAMINE SULFATE
  6. BREZTRI [Concomitant]
     Active Substance: BUDESONIDE\FORMOTEROL\GLYCOPYRROLATE
  7. MELOXICAM [Concomitant]
     Active Substance: MELOXICAM
  8. COLACE [Concomitant]
     Active Substance: DOCUSATE SODIUM
  9. DIPHENHYDRAMINE HYDROCHLORIDE [Concomitant]
     Active Substance: DIPHENHYDRAMINE HYDROCHLORIDE
  10. VITAMIN B COMPLEX [Concomitant]
     Active Substance: CYANOCOBALAMIN\DEXPANTHENOL\NIACINAMIDE\PYRIDOXINE HYDROCHLORIDE\RIBOFLAVIN 5^-PHOSPHATE SODIUM\THIA
  11. OMEPRAZOLE [Concomitant]
     Active Substance: OMEPRAZOLE
  12. BAYER ASPIRIN [Concomitant]
     Active Substance: ASPIRIN
  13. GARLIC [Concomitant]
     Active Substance: GARLIC
  14. ZINC [Concomitant]
     Active Substance: ZINC
  15. FISH OIL [Concomitant]
     Active Substance: FISH OIL
  16. CHLORTHALIDONE [Concomitant]
     Active Substance: CHLORTHALIDONE
  17. SILDENAFIL CITRATE [Concomitant]
     Active Substance: SILDENAFIL CITRATE
  18. PRAVASTATIN SODIUM [Concomitant]
     Active Substance: PRAVASTATIN SODIUM
  19. AMLODIPINE BESYLATE [Concomitant]
     Active Substance: AMLODIPINE BESYLATE
  20. ALBUTEROL SULFATE [Concomitant]
     Active Substance: ALBUTEROL SULFATE
  21. VITAMINS NOS [Concomitant]
     Active Substance: VITAMINS

REACTIONS (1)
  - Dyspnoea [Unknown]

NARRATIVE: CASE EVENT DATE: 20251101
